FAERS Safety Report 5922374-2 (Version None)
Quarter: 2008Q4

REPORT INFORMATION
  Report Type: 
  Country: None (occurrence: None)
  Receive Date: 20081017
  Receipt Date: 20081009
  Transmission Date: 20090506
  Serious: Yes (Death, Life-Threatening)
  Sender: FDA-Public Use
  Company Number: US-MERCK-0708USA05268

PATIENT
  Age: 15 Year
  Sex: Male
  Weight: 63 kg

DRUGS (1)
  1. SINGULAIR [Suspect]
     Indication: RHINITIS ALLERGIC
     Route: 048
     Dates: start: 20070701, end: 20070804

REACTIONS (36)
  - AGITATION [None]
  - ANGER [None]
  - ANXIETY [None]
  - APNOEA [None]
  - ASPHYXIA [None]
  - ASTHENIA [None]
  - CARDIAC ARREST [None]
  - COMPLETED SUICIDE [None]
  - DEPRESSION [None]
  - ECCHYMOSIS [None]
  - ELECTROMECHANICAL DISSOCIATION [None]
  - EMOTIONAL DISORDER [None]
  - EXCORIATION [None]
  - FEAR [None]
  - HAEMORRHAGE [None]
  - HYPERHIDROSIS [None]
  - INSOMNIA [None]
  - IRRITABILITY [None]
  - MOOD SWINGS [None]
  - MYALGIA [None]
  - NEGATIVE THOUGHTS [None]
  - PAIN IN EXTREMITY [None]
  - PETECHIAE [None]
  - POST PROCEDURAL COMPLICATION [None]
  - PULMONARY CONGESTION [None]
  - PULMONARY OEDEMA [None]
  - PULSE ABSENT [None]
  - SENSATION OF HEAVINESS [None]
  - SOFT TISSUE HAEMORRHAGE [None]
  - STRESS [None]
  - SUBCUTANEOUS EMPHYSEMA [None]
  - THYROID NEOPLASM [None]
  - TREMOR [None]
  - UNRESPONSIVE TO STIMULI [None]
  - VENTRICULAR FIBRILLATION [None]
  - VISCERAL CONGESTION [None]
